FAERS Safety Report 11201282 (Version 2)
Quarter: 2015Q3

REPORT INFORMATION
  Report Type: Report from Study
  Country: CA (occurrence: CA)
  Receive Date: 20150619
  Receipt Date: 20150729
  Transmission Date: 20151125
  Serious: Yes (Other)
  Sender: FDA-Public Use
  Company Number: PHHY2013CA046574

PATIENT
  Age: 51 Year
  Sex: Female

DRUGS (1)
  1. GILENYA [Suspect]
     Active Substance: FINGOLIMOD HYDROCHLORIDE
     Indication: RELAPSING-REMITTING MULTIPLE SCLEROSIS
     Dosage: 0.5 MG, QD
     Route: 048
     Dates: start: 20130108, end: 20150716

REACTIONS (12)
  - Rash macular [Unknown]
  - Skin disorder [Unknown]
  - Acanthosis [Unknown]
  - Skin cancer [Unknown]
  - Herpes zoster [Recovered/Resolved]
  - Rash pruritic [Unknown]
  - Hyperkeratosis [Unknown]
  - Neurodermatitis [Unknown]
  - Dermatitis psoriasiform [Unknown]
  - Eczema [Unknown]
  - Rash [Unknown]
  - Skin papilloma [Unknown]

NARRATIVE: CASE EVENT DATE: 20130428
